FAERS Safety Report 19384951 (Version 1)
Quarter: 2021Q2

REPORT INFORMATION
  Report Type: Spontaneous
  Country: US (occurrence: US)
  Receive Date: 20210607
  Receipt Date: 20210607
  Transmission Date: 20210717
  Serious: No
  Sender: FDA-Public Use
  Company Number: US-PERRIGO-20US011992

PATIENT
  Age: 52 Year
  Sex: Male
  Weight: 95.24 kg

DRUGS (1)
  1. MINOXIDIL. [Suspect]
     Active Substance: MINOXIDIL
     Indication: ALOPECIA
     Dosage: 1/2 CAP, BID
     Route: 061
     Dates: start: 20200811, end: 20200814

REACTIONS (9)
  - Eye irritation [Recovering/Resolving]
  - Application site rash [Recovering/Resolving]
  - Application site scab [Recovering/Resolving]
  - Erythema of eyelid [Recovering/Resolving]
  - Exposure via eye contact [Recovering/Resolving]
  - Eyelid ptosis [Recovering/Resolving]
  - Eye pruritus [Recovering/Resolving]
  - Eye swelling [Recovering/Resolving]
  - Application site erythema [Recovering/Resolving]

NARRATIVE: CASE EVENT DATE: 20200814
